FAERS Safety Report 19181919 (Version 2)
Quarter: 2021Q2

REPORT INFORMATION
  Report Type: Spontaneous
  Country: US (occurrence: US)
  Receive Date: 20210427
  Receipt Date: 20210611
  Transmission Date: 20210717
  Serious: Yes (Other)
  Sender: FDA-Public Use
  Company Number: US-SUN PHARMACEUTICAL INDUSTRIES LTD-2021R1-293142

PATIENT
  Age: 26 Year
  Sex: Female

DRUGS (1)
  1. NORADRENALINE [Suspect]
     Active Substance: NOREPINEPHRINE
     Indication: HAEMODYNAMIC INSTABILITY
     Dosage: 0.05 MICROGRAM/KILOGRAM/MIN
     Route: 065

REACTIONS (1)
  - Drug ineffective [Unknown]
